FAERS Safety Report 6903550-9 (Version None)
Quarter: 2010Q3

REPORT INFORMATION
  Report Type: 
  Country: None (occurrence: None)
  Receive Date: 20100803
  Receipt Date: 20081111
  Transmission Date: 20110219
  Serious: No
  Sender: FDA-Public Use
  Company Number: US-PFIZER INC-2008090043

PATIENT
  Sex: Female

DRUGS (8)
  1. LYRICA [Suspect]
     Indication: NEURALGIA
     Dates: start: 20080910, end: 20080917
  2. EVISTA [Concomitant]
  3. CELEBREX [Concomitant]
  4. FLEXERIL [Concomitant]
  5. ULTRAM [Concomitant]
  6. ACIPHEX [Concomitant]
  7. WELLBUTRIN [Concomitant]
  8. CLONIDINE [Concomitant]

REACTIONS (1)
  - VISUAL IMPAIRMENT [None]
